FAERS Safety Report 10536632 (Version 1)
Quarter: 2014Q4

REPORT INFORMATION
  Report Type: Spontaneous
  Country: US (occurrence: US)
  Receive Date: 20141022
  Receipt Date: 20141022
  Transmission Date: 20150529
  Serious: No
  Sender: FDA-Public Use
  Company Number: US-RECKITT BENCKISER PHARMACEUTICAL, INC-RB-68666-2014

PATIENT

DRUGS (3)
  1. SUBOXONE [Suspect]
     Active Substance: BUPRENORPHINE HYDROCHLORIDE\NALOXONE HYDROCHLORIDE
     Indication: DRUG DEPENDENCE
     Dosage: SUBXOOXNE FILM; TAKING AS PRESCRIBED; DOSING DETAILS UNKNOWN
     Route: 060
     Dates: start: 201405, end: 201406
  2. SUBOXONE [Suspect]
     Active Substance: BUPRENORPHINE HYDROCHLORIDE\NALOXONE HYDROCHLORIDE
     Dosage: SUBOXONE FILM; CUTTING AND NOT TAKING AS PRESCRIBED; TAKING 12-16 MG DAILY.
     Route: 060
     Dates: start: 201406, end: 20140608
  3. SUBOXONE [Suspect]
     Active Substance: BUPRENORPHINE HYDROCHLORIDE\NALOXONE HYDROCHLORIDE
     Dosage: SUBPOXXONE FILM; TAKING AS PRESCRIBED; DOSING DETAILS UNKNOWN
     Route: 060
     Dates: start: 20140609

REACTIONS (2)
  - Wrong technique in drug usage process [Recovered/Resolved]
  - Extra dose administered [Recovered/Resolved]

NARRATIVE: CASE EVENT DATE: 201406
